FAERS Safety Report 11359523 (Version 2)
Quarter: 2015Q3

REPORT INFORMATION
  Report Type: Spontaneous
  Country: FR (occurrence: FR)
  Receive Date: 20150807
  Receipt Date: 20150809
  Transmission Date: 20151125
  Serious: Yes (Other)
  Sender: FDA-Public Use
  Company Number: FR-BAXTER-2015BAX042351

PATIENT
  Sex: Female

DRUGS (6)
  1. DOXORUBICIN [Suspect]
     Active Substance: DOXORUBICIN
     Indication: BREAST CANCER
     Dosage: FIRST COURSE
     Route: 065
     Dates: start: 20150311
  2. PROPESS [Concomitant]
     Active Substance: DINOPROSTONE
     Indication: LABOUR INDUCTION
     Route: 065
     Dates: start: 20150505, end: 20150505
  3. SYNTOCINON [Concomitant]
     Active Substance: OXYTOCIN
     Indication: LABOUR INDUCTION
     Route: 065
     Dates: start: 20150505, end: 20150505
  4. ENDOXAN 1000 MG, POUDRE POUR SOLUTION INJECTABLE [Suspect]
     Active Substance: CYCLOPHOSPHAMIDE
     Indication: BREAST CANCER
     Dosage: FIRST COURSE
     Route: 065
     Dates: start: 20150311
  5. ENDOXAN 1000 MG, POUDRE POUR SOLUTION INJECTABLE [Suspect]
     Active Substance: CYCLOPHOSPHAMIDE
     Dosage: SECOND COURSE
     Route: 065
     Dates: start: 20150403
  6. DOXORUBICIN [Suspect]
     Active Substance: DOXORUBICIN
     Dosage: SECOND COURSE
     Route: 065
     Dates: start: 20150403

REACTIONS (2)
  - No adverse event [Recovered/Resolved]
  - Exposure during pregnancy [Recovered/Resolved]

NARRATIVE: CASE EVENT DATE: 20150311
